FAERS Safety Report 22628831 (Version 1)
Quarter: 2023Q2

REPORT INFORMATION
  Report Type: Spontaneous
  Country: US (occurrence: None)
  Receive Date: 20230621
  Receipt Date: 20230621
  Transmission Date: 20230721
  Serious: Yes (Hospitalization)
  Sender: FDA-Public Use
  Company Number: None

PATIENT
  Age: 50 Year
  Sex: Female

DRUGS (2)
  1. AMBRISENTAN [Suspect]
     Active Substance: AMBRISENTAN
     Indication: Pulmonary arterial hypertension
     Dosage: FREQUENCY : DAILY;?
     Route: 048
     Dates: start: 20221117
  2. Sildenafil 40mg 3 x day [Concomitant]
     Dates: start: 20221117

REACTIONS (3)
  - Hyperthyroidism [None]
  - Graves^ disease [None]
  - Disease complication [None]

NARRATIVE: CASE EVENT DATE: 20230621
